FAERS Safety Report 26126095 (Version 1)
Quarter: 2025Q4

REPORT INFORMATION
  Report Type: Spontaneous
  Country: EU (occurrence: EU)
  Receive Date: 20251205
  Receipt Date: 20251205
  Transmission Date: 20260117
  Serious: Yes (Hospitalization, Other)
  Sender: PFIZER
  Company Number: EU-PFIZER INC-PV202500140890

PATIENT
  Age: 79 Year

DRUGS (3)
  1. METHYLPREDNISOLONE [Suspect]
     Active Substance: METHYLPREDNISOLONE
     Indication: Immune thrombocytopenia
     Dosage: 64 MG
  2. METHYLPREDNISOLONE [Suspect]
     Active Substance: METHYLPREDNISOLONE
     Dosage: 8 MG
  3. METHYLPREDNISOLONE [Suspect]
     Active Substance: METHYLPREDNISOLONE
     Dosage: 4 MG

REACTIONS (8)
  - Sepsis [Unknown]
  - Cushing^s syndrome [Unknown]
  - Pulmonary embolism [Unknown]
  - Femoral neck fracture [Unknown]
  - Osteonecrosis [Unknown]
  - Compression fracture [Unknown]
  - Postoperative wound infection [Unknown]
  - Osteoporosis [Unknown]
